FAERS Safety Report 9997918 (Version 1)
Quarter: 2014Q1

REPORT INFORMATION
  Report Type: Spontaneous
  Country: US (occurrence: US)
  Receive Date: 20140311
  Receipt Date: 20140311
  Transmission Date: 20141002
  Serious: No
  Sender: FDA-Public Use
  Company Number: US-ENDO PHARMACEUTICALS INC.-TRAZ20130015

PATIENT
  Sex: Male

DRUGS (6)
  1. TRAZODONE HYDROCHLORIDE TABLETS [Suspect]
     Indication: INSOMNIA
     Dosage: UNKNOWN
     Route: 048
  2. PREZISTA [Concomitant]
     Indication: HIV INFECTION
     Dosage: UNKNOWN
     Route: 065
  3. INTELENCE [Concomitant]
     Indication: HIV INFECTION
     Dosage: UNKNOWN
     Route: 065
  4. NORVIR [Concomitant]
     Indication: HIV INFECTION
     Dosage: UNKNOWN
     Route: 065
  5. SYNTHROID [Concomitant]
     Indication: PRODUCT USED FOR UNKNOWN INDICATION
     Dosage: UNKNOWN
     Route: 065
  6. CELEXA [Concomitant]
     Indication: DEPRESSION
     Dosage: UNKNOWN
     Route: 065

REACTIONS (1)
  - Gout [Recovering/Resolving]
